FAERS Safety Report 24451140 (Version 1)
Quarter: 2024Q4

REPORT INFORMATION
  Report Type: Spontaneous
  Country: US (occurrence: US)
  Receive Date: 20241017
  Receipt Date: 20241017
  Transmission Date: 20250115
  Serious: Yes (Other)
  Sender: ORGANON
  Company Number: US-ORGANON-O2410USA001348

PATIENT
  Sex: Female

DRUGS (1)
  1. NEXPLANON [Suspect]
     Active Substance: ETONOGESTREL
     Dosage: 1 IMPLANT
     Route: 059

REACTIONS (4)
  - Syncope [Unknown]
  - Fatigue [Unknown]
  - Dizziness [Unknown]
  - Vomiting [Unknown]
